FAERS Safety Report 17322908 (Version 1)
Quarter: 2020Q1

REPORT INFORMATION
  Report Type: Spontaneous
  Country: US (occurrence: US)
  Receive Date: 20200124
  Receipt Date: 20200124
  Transmission Date: 20200409
  Serious: Yes (Other)
  Sender: FDA-Public Use
  Company Number: None

PATIENT
  Age: 40 Year
  Sex: Female
  Weight: 83.25 kg

DRUGS (6)
  1. AJOVY [Suspect]
     Active Substance: FREMANEZUMAB-VFRM
     Indication: MIGRAINE
     Dosage: ?          OTHER FREQUENCY:ONCE A MONTH;?
     Route: 058
  2. MOTRIN [Concomitant]
     Active Substance: IBUPROFEN
  3. MAXALT [Concomitant]
     Active Substance: RIZATRIPTAN BENZOATE
  4. TYLENOL [Concomitant]
     Active Substance: ACETAMINOPHEN
  5. LYRICA [Concomitant]
     Active Substance: PREGABALIN
  6. BENADRYL [Concomitant]
     Active Substance: DIPHENHYDRAMINE HYDROCHLORIDE

REACTIONS (3)
  - Anxiety [None]
  - Insomnia [None]
  - Depression [None]

NARRATIVE: CASE EVENT DATE: 20200110
